FAERS Safety Report 7552261-8 (Version None)
Quarter: 2011Q2

REPORT INFORMATION
  Report Type: 
  Country: None (occurrence: None)
  Receive Date: 20110616
  Receipt Date: 20030514
  Transmission Date: 20111010
  Serious: Yes (Other)
  Sender: FDA-Public Use
  Company Number: PHHO2003CL06235

PATIENT
  Age: 46 Year
  Sex: Male

DRUGS (2)
  1. VALSARTAN [Suspect]
     Indication: ESSENTIAL HYPERTENSION
     Dosage: 80 MG, UNK
     Route: 048
  2. MICARDIS [Concomitant]

REACTIONS (1)
  - THROMBOSIS [None]
